FAERS Safety Report 12447204 (Version 1)
Quarter: 2016Q2

REPORT INFORMATION
  Report Type: Spontaneous
  Country: US (occurrence: US)
  Receive Date: 20160608
  Receipt Date: 20160608
  Transmission Date: 20160815
  Serious: No
  Sender: FDA-Public Use
  Company Number: US-ACTAVIS-2015-16762

PATIENT
  Sex: Male

DRUGS (1)
  1. RAMIPRIL (AELLC) [Suspect]
     Active Substance: RAMIPRIL
     Indication: CARDIOVASCULAR EVENT PROPHYLAXIS
     Dosage: 1.25 MG, DAILY
     Route: 048
     Dates: start: 2013

REACTIONS (2)
  - Skin exfoliation [Not Recovered/Not Resolved]
  - Anal injury [Not Recovered/Not Resolved]

NARRATIVE: CASE EVENT DATE: 2013
